FAERS Safety Report 24578552 (Version 1)
Quarter: 2024Q4

REPORT INFORMATION
  Report Type: Report from Study
  Country: BR (occurrence: BR)
  Receive Date: 20241105
  Receipt Date: 20241105
  Transmission Date: 20250115
  Serious: Yes (Other)
  Sender: TAKEDA
  Company Number: BR-TAKEDA-2024TUS079310

PATIENT
  Age: 13 Year
  Sex: Male
  Weight: 34 kg

DRUGS (3)
  1. HUMAN IMMUNOGLOBULIN G\HYALURONIDASE RECOMBINANT HUMAN [Suspect]
     Active Substance: HUMAN IMMUNOGLOBULIN G\HYALURONIDASE (HUMAN RECOMBINANT)
     Indication: Primary immunodeficiency syndrome
     Dosage: 50 GRAM, Q4WEEKS
     Route: 058
     Dates: start: 20240615
  2. HUMAN IMMUNOGLOBULIN G\HYALURONIDASE RECOMBINANT HUMAN [Suspect]
     Active Substance: HUMAN IMMUNOGLOBULIN G\HYALURONIDASE (HUMAN RECOMBINANT)
     Indication: Immunodeficiency
  3. ENDOBULIN [Suspect]
     Active Substance: HUMAN IMMUNOGLOBULIN G
     Indication: Primary immunodeficiency syndrome
     Dosage: 50 GRAM, MONTHLY
     Route: 042
     Dates: start: 202308, end: 202405

REACTIONS (8)
  - Hypereosinophilic syndrome [Unknown]
  - Thrombocytopenia [Unknown]
  - Leukopenia [Unknown]
  - Poor venous access [Recovered/Resolved]
  - Incorrect product administration duration [Unknown]
  - Overdose [Unknown]
  - Infection [Unknown]
  - Inappropriate schedule of product administration [Not Recovered/Not Resolved]

NARRATIVE: CASE EVENT DATE: 20230801
